FAERS Safety Report 16041559 (Version 3)
Quarter: 2020Q3

REPORT INFORMATION
  Report Type: Report from Study
  Country: AU (occurrence: AU)
  Receive Date: 20190306
  Receipt Date: 20190320
  Transmission Date: 20201105
  Serious: Yes (Life-Threatening, Hospitalization, Other)
  Sender: FDA-Public Use
  Company Number: AU-ROCHE-2092871

PATIENT
  Age: 37 Year
  Sex: Male
  Weight: 88.8 kg

DRUGS (34)
  1. OBINUTUZUMAB. [Suspect]
     Active Substance: OBINUTUZUMAB
     Indication: B-CELL LYMPHOMA
     Dosage: DATE OF MOST RECENT DOSE OF OBINUTUZUMAB (1000 MG) PRIOR TO THE ADVERSE EVENT: 01/MAR/2018?ON DAYS 1
     Route: 042
     Dates: start: 20180201
  2. ALLOPURINOL. [Concomitant]
     Active Substance: ALLOPURINOL
     Indication: PROPHYLAXIS
     Route: 065
     Dates: start: 20180130, end: 20180208
  3. PAMIDRONATE [Concomitant]
     Active Substance: PAMIDRONATE DISODIUM
     Route: 065
     Dates: start: 20180129, end: 20180131
  4. FILGRASTIM [Concomitant]
     Active Substance: FILGRASTIM
     Indication: NEUTROPENIA
     Route: 065
     Dates: start: 20180228, end: 20180301
  5. NALOXONE/OXYCODONE HYDROCHLORIDE [Concomitant]
     Indication: PAIN
     Route: 065
     Dates: start: 20180201, end: 20180201
  6. VALACICLOVIR [Concomitant]
     Active Substance: VALACYCLOVIR HYDROCHLORIDE
     Route: 065
     Dates: start: 20180215
  7. BACTRIM DS [Concomitant]
     Active Substance: SULFAMETHOXAZOLE\TRIMETHOPRIM
     Route: 065
     Dates: start: 20180201, end: 20180315
  8. LORATADINE. [Concomitant]
     Active Substance: LORATADINE
     Route: 048
     Dates: start: 20180201, end: 20180201
  9. DEXAMETHASONE. [Concomitant]
     Active Substance: DEXAMETHASONE
     Route: 048
     Dates: start: 20180205, end: 20180205
  10. CODEINE [Concomitant]
     Active Substance: CODEINE
     Indication: PAIN
     Route: 065
     Dates: start: 20180130, end: 20180201
  11. COLOXYL WITH SENNA [Concomitant]
     Active Substance: DOCUSATE SODIUM\SENNOSIDES A AND B
     Indication: CONSTIPATION
     Route: 065
     Dates: start: 20180201, end: 20180206
  12. PANADOL [Concomitant]
     Active Substance: ACETAMINOPHEN
     Route: 048
     Dates: start: 20180215, end: 20180215
  13. DEXAMETHASONE. [Concomitant]
     Active Substance: DEXAMETHASONE
     Route: 048
     Dates: start: 20180201, end: 20180201
  14. PREGABALIN. [Concomitant]
     Active Substance: PREGABALIN
     Indication: NEURALGIA
     Route: 065
     Dates: start: 20180318
  15. MORPHINE SULPHATE [Concomitant]
     Active Substance: MORPHINE SULFATE
     Indication: PAIN
     Route: 065
     Dates: start: 20180131, end: 20180201
  16. PANADOL [Concomitant]
     Active Substance: ACETAMINOPHEN
     Route: 048
     Dates: start: 20180201, end: 20180201
  17. PANADOL [Concomitant]
     Active Substance: ACETAMINOPHEN
     Route: 048
     Dates: start: 20180205, end: 20180205
  18. SEVELAMER [Concomitant]
     Active Substance: SEVELAMER
     Route: 065
     Dates: start: 20180202, end: 20180202
  19. IDASANUTLIN. [Suspect]
     Active Substance: IDASANUTLIN
     Indication: B-CELL LYMPHOMA
     Dosage: DATED OF MOST RECENT DOSE OF IDASANUTLIN (100 MG) PRIOR TO THE ADVERSE EVENT: 05/MAR/2018?DOSE: STAR
     Route: 048
     Dates: start: 20180201
  20. LORATADINE. [Concomitant]
     Active Substance: LORATADINE
     Route: 048
     Dates: start: 20180215, end: 20180215
  21. LORATADINE. [Concomitant]
     Active Substance: LORATADINE
     Route: 048
     Dates: start: 20180301, end: 20180301
  22. DEXAMETHASONE. [Concomitant]
     Active Substance: DEXAMETHASONE
     Route: 065
     Dates: start: 20180318
  23. PARACETAMOL [Concomitant]
     Active Substance: ACETAMINOPHEN
     Indication: PAIN
     Route: 065
     Dates: start: 20180130
  24. VENETOCLAX. [Suspect]
     Active Substance: VENETOCLAX
     Indication: B-CELL LYMPHOMA
     Dosage: DATE OF MOST RECENT DOSE VENETOCLAX (200 MG) PRIOR TO THE ADVSERSE EVENT: 05/MAR/2018?DOSE: STARTING
     Route: 048
     Dates: start: 20180201
  25. PANADOL [Concomitant]
     Active Substance: ACETAMINOPHEN
     Route: 048
     Dates: start: 20180301, end: 20180301
  26. LORATADINE. [Concomitant]
     Active Substance: LORATADINE
     Route: 048
     Dates: start: 20180205, end: 20180205
  27. PAMIDRONATE [Concomitant]
     Active Substance: PAMIDRONATE DISODIUM
     Indication: HYPERCALCAEMIA
     Route: 042
     Dates: start: 20180219, end: 20180219
  28. PAMIDRONATE [Concomitant]
     Active Substance: PAMIDRONATE DISODIUM
     Route: 042
     Dates: start: 20180404, end: 20180404
  29. PANTOPRAZOLE [Concomitant]
     Active Substance: PANTOPRAZOLE
     Indication: GASTROOESOPHAGEAL REFLUX DISEASE
     Route: 065
     Dates: start: 201801
  30. SEVELAMER [Concomitant]
     Active Substance: SEVELAMER
     Indication: TUMOUR LYSIS SYNDROME
     Route: 065
  31. PREDNISOLONE. [Concomitant]
     Active Substance: PREDNISOLONE
     Dosage: TUMOUR BURDEN
     Route: 065
     Dates: start: 20180125, end: 20180211
  32. HYDROMORPH [Concomitant]
     Active Substance: HYDROMORPHONE
     Indication: PAIN
     Route: 065
     Dates: start: 20180201, end: 20180201
  33. SODIUM BICARBONATE. [Concomitant]
     Active Substance: SODIUM BICARBONATE
     Indication: TUMOUR LYSIS SYNDROME
     Route: 065
     Dates: start: 20180130, end: 20180205
  34. SODIUM PHOSPHATE [Concomitant]
     Active Substance: SODIUM PHOSPHATE
     Indication: BLOOD PHOSPHORUS DECREASED
     Route: 065
     Dates: start: 20180131, end: 20180202

REACTIONS (6)
  - Neutropenia [Recovered/Resolved]
  - Blood bilirubin increased [Not Recovered/Not Resolved]
  - Blood alkaline phosphatase increased [Not Recovered/Not Resolved]
  - Headache [Recovering/Resolving]
  - Aspartate aminotransferase increased [Not Recovered/Not Resolved]
  - Alanine aminotransferase increased [Not Recovered/Not Resolved]

NARRATIVE: CASE EVENT DATE: 20180228
